FAERS Safety Report 8429672-1 (Version None)
Quarter: 2012Q2

REPORT INFORMATION
  Report Type: 
  Country: None (occurrence: None)
  Receive Date: 20120323
  Receipt Date: 20110308
  Transmission Date: 20120825
  Serious: Yes (Hospitalization)
  Sender: FDA-Public Use
  Company Number: 163-21880-11022735

PATIENT
  Age: 74 Year
  Sex: Female
  Weight: 85.7298 kg

DRUGS (11)
  1. REVLIMID [Suspect]
     Indication: MULTIPLE MYELOMA
     Dosage: 5 MG, 1 IN 1 D, PO ; 5 MG, 1 IN 1 D, PO
     Route: 048
     Dates: start: 20100801, end: 20110131
  2. REVLIMID [Suspect]
     Indication: MULTIPLE MYELOMA
     Dosage: 5 MG, 1 IN 1 D, PO ; 5 MG, 1 IN 1 D, PO
     Route: 048
     Dates: start: 20110201
  3. ASPIRIN [Concomitant]
  4. CLONAZEPAM [Concomitant]
  5. RENAGEL [Concomitant]
  6. LEVOTHYROXINE SODIUM [Concomitant]
  7. DEXAMETHASONE [Concomitant]
  8. LASIX [Concomitant]
  9. NEURONTIN [Concomitant]
  10. SYNTHROID [Concomitant]
  11. ATIVAN [Concomitant]

REACTIONS (1)
  - CELLULITIS [None]
